FAERS Safety Report 25224113 (Version 1)
Quarter: 2025Q2

REPORT INFORMATION
  Report Type: Report from Study
  Country: US (occurrence: US)
  Receive Date: 20250422
  Receipt Date: 20250422
  Transmission Date: 20250716
  Serious: Yes (Other)
  Sender: ROCHE
  Company Number: US-ROCHE-10000257583

PATIENT
  Sex: Male

DRUGS (27)
  1. MYCOPHENOLATE MOFETIL [Suspect]
     Active Substance: MYCOPHENOLATE MOFETIL
     Indication: Renal transplant
     Dosage: 250 MG 3 CAPSULE TWICE A DAY.
     Route: 048
  2. ACETAMINOPHEN [Concomitant]
     Active Substance: ACETAMINOPHEN
  3. APIXABAN [Concomitant]
     Active Substance: APIXABAN
  4. CALCITRIOL [Concomitant]
     Active Substance: CALCITRIOL
  5. CARVEDILOL [Concomitant]
     Active Substance: CARVEDILOL
  6. CLONIDINE [Concomitant]
     Active Substance: CLONIDINE
  7. CYCLOBENZAPRINE [Concomitant]
     Active Substance: CYCLOBENZAPRINE
  8. DABIGATRAN [Concomitant]
     Active Substance: DABIGATRAN
  9. DAPAGLIFLOZIN PROPANEDIOL [Concomitant]
     Active Substance: DAPAGLIFLOZIN PROPANEDIOL
  10. DOXAZOSIN [Concomitant]
     Active Substance: DOXAZOSIN MESYLATE
  11. ESCITALOPRAM [Concomitant]
     Active Substance: ESCITALOPRAM OXALATE
  12. FLUTICASONE PROPIONATE [Concomitant]
     Active Substance: FLUTICASONE PROPIONATE
  13. KETOCONAZOLE [Concomitant]
     Active Substance: KETOCONAZOLE
  14. MAGNESIUM OXIDE [Concomitant]
     Active Substance: MAGNESIUM OXIDE
  15. NIFEDIPINE [Concomitant]
     Active Substance: NIFEDIPINE
  16. PANTOPRAZOLE [Concomitant]
     Active Substance: PANTOPRAZOLE
  17. POLYETHYLENE GLYCOL [Concomitant]
     Active Substance: POLYETHYLENE GLYCOL
  18. PREDNISONE [Concomitant]
     Active Substance: PREDNISONE
  19. SODIUM BICARBONATE [Concomitant]
     Active Substance: SODIUM BICARBONATE
  20. SPIRONOLACTONE [Concomitant]
     Active Substance: SPIRONOLACTONE
  21. TACROLIMUS [Concomitant]
     Active Substance: TACROLIMUS
  22. VITAMIN D3 [Concomitant]
     Active Substance: CHOLECALCIFEROL
  23. ASPIRIN [Concomitant]
     Active Substance: ASPIRIN
  24. BENZONATATE [Concomitant]
     Active Substance: BENZONATATE
  25. SODIUM [Concomitant]
     Active Substance: SODIUM
  26. POTASSIUM [Concomitant]
     Active Substance: POTASSIUM
  27. UNSPECIFIED INGREDIENT [Concomitant]
     Active Substance: UNSPECIFIED INGREDIENT

REACTIONS (20)
  - Hypertension [Unknown]
  - Diabetic nephropathy [Unknown]
  - Hyperuricaemia [Unknown]
  - Hyperparathyroidism secondary [Unknown]
  - End stage renal disease [Unknown]
  - Rhabdomyolysis [Unknown]
  - Abdominal distension [Unknown]
  - Hypomagnesaemia [Unknown]
  - Chest pain [Unknown]
  - Left ventricular hypertrophy [Unknown]
  - Urinary tract infection [Unknown]
  - Hypophosphataemia [Unknown]
  - Amyloidosis [Unknown]
  - Arnold-Chiari malformation [Unknown]
  - Chronic kidney disease [Unknown]
  - Renal artery stenosis [Unknown]
  - Acute kidney injury [Unknown]
  - Hereditary hypophosphataemic rickets [Unknown]
  - Kidney transplant rejection [Unknown]
  - Disability [Unknown]
